FAERS Safety Report 25503278 (Version 1)
Quarter: 2025Q3

REPORT INFORMATION
  Report Type: Spontaneous
  Country: GB (occurrence: GB)
  Receive Date: 20250702
  Receipt Date: 20250702
  Transmission Date: 20251020
  Serious: Yes (Hospitalization)
  Sender: MYLAN
  Company Number: GB-MYLANLABS-2025M1054189

PATIENT
  Age: 76 Year
  Sex: Male

DRUGS (20)
  1. RIFAMPIN [Suspect]
     Active Substance: RIFAMPIN
     Indication: Pulmonary tuberculosis
  2. RIFAMPIN [Suspect]
     Active Substance: RIFAMPIN
     Route: 065
  3. RIFAMPIN [Suspect]
     Active Substance: RIFAMPIN
     Route: 065
  4. RIFAMPIN [Suspect]
     Active Substance: RIFAMPIN
  5. ISONIAZID [Suspect]
     Active Substance: ISONIAZID
     Indication: Pulmonary tuberculosis
  6. ISONIAZID [Suspect]
     Active Substance: ISONIAZID
     Route: 065
  7. ISONIAZID [Suspect]
     Active Substance: ISONIAZID
     Route: 065
  8. ISONIAZID [Suspect]
     Active Substance: ISONIAZID
  9. PYRAZINAMIDE [Suspect]
     Active Substance: PYRAZINAMIDE
     Indication: Pulmonary tuberculosis
  10. PYRAZINAMIDE [Suspect]
     Active Substance: PYRAZINAMIDE
     Route: 065
  11. PYRAZINAMIDE [Suspect]
     Active Substance: PYRAZINAMIDE
     Route: 065
  12. PYRAZINAMIDE [Suspect]
     Active Substance: PYRAZINAMIDE
  13. PREDNISOLONE [Concomitant]
     Active Substance: PREDNISOLONE
     Indication: Polymyalgia rheumatica
     Dosage: 6 MILLIGRAM, QD
  14. PREDNISOLONE [Concomitant]
     Active Substance: PREDNISOLONE
     Dosage: 6 MILLIGRAM, QD
  15. PREDNISOLONE [Concomitant]
     Active Substance: PREDNISOLONE
     Dosage: 6 MILLIGRAM, QD
     Route: 065
  16. PREDNISOLONE [Concomitant]
     Active Substance: PREDNISOLONE
     Dosage: 6 MILLIGRAM, QD
     Route: 065
  17. PREDNISOLONE [Concomitant]
     Active Substance: PREDNISOLONE
     Dosage: 15 MILLIGRAM, QD
  18. PREDNISOLONE [Concomitant]
     Active Substance: PREDNISOLONE
     Dosage: 15 MILLIGRAM, QD
  19. PREDNISOLONE [Concomitant]
     Active Substance: PREDNISOLONE
     Dosage: 15 MILLIGRAM, QD
     Route: 065
  20. PREDNISOLONE [Concomitant]
     Active Substance: PREDNISOLONE
     Dosage: 15 MILLIGRAM, QD
     Route: 065

REACTIONS (2)
  - Gout [Recovered/Resolved]
  - Arthritis [Recovered/Resolved]
